FAERS Safety Report 21291007 (Version 1)
Quarter: 2022Q3

REPORT INFORMATION
  Report Type: Spontaneous
  Country: ES (occurrence: ES)
  Receive Date: 20220903
  Receipt Date: 20220903
  Transmission Date: 20221027
  Serious: Yes (Other)
  Sender: FDA-Public Use
  Company Number: ES-AEMPS-1009702

PATIENT
  Age: 50 Year
  Sex: Male

DRUGS (1)
  1. ATOMOXETINE [Suspect]
     Active Substance: ATOMOXETINE
     Indication: Attention deficit hyperactivity disorder
     Dosage: 1 DOSAGE FORM, ONCE A DAY (1 TABLET EVERY 24 HOURS)
     Route: 048
     Dates: start: 20210602, end: 20210612

REACTIONS (3)
  - Hypersomnia [Recovered/Resolved]
  - Urinary retention [Recovered/Resolved]
  - Hypertension [Recovered/Resolved]

NARRATIVE: CASE EVENT DATE: 20210603
